FAERS Safety Report 19729131 (Version 2)
Quarter: 2021Q4

REPORT INFORMATION
  Report Type: Spontaneous
  Country: US (occurrence: US)
  Receive Date: 20210820
  Receipt Date: 20211118
  Transmission Date: 20220303
  Serious: Yes (Other)
  Sender: FDA-Public Use
  Company Number: US-MALLINCKRODT PHARMACEUTICALS-T202103570

PATIENT
  Sex: Female
  Weight: 156 kg

DRUGS (2)
  1. H.P. ACTHAR [Suspect]
     Active Substance: CORTICOTROPIN
     Indication: Systemic lupus erythematosus
     Dosage: 80 UNITS, 1 MILLILITER, EVERY 72 HOURS
     Route: 058
     Dates: start: 202103
  2. H.P. ACTHAR [Suspect]
     Active Substance: CORTICOTROPIN
     Dosage: 80 UNITS, 1 MILLILITER, EVERY 72 HOURS
     Route: 058

REACTIONS (5)
  - Systemic lupus erythematosus [Not Recovered/Not Resolved]
  - Infection [Unknown]
  - Drug ineffective [Not Recovered/Not Resolved]
  - Gait disturbance [Unknown]
  - Hypokinesia [Unknown]

NARRATIVE: CASE EVENT DATE: 20210101
